FAERS Safety Report 11926359 (Version 1)
Quarter: 2016Q1

REPORT INFORMATION
  Report Type: Spontaneous
  Country: US (occurrence: None)
  Receive Date: 20160115
  Receipt Date: 20160115
  Transmission Date: 20160526
  Serious: Yes (Hospitalization)
  Sender: FDA-Public Use
  Company Number: None

PATIENT
  Age: 87 Year
  Sex: Male

DRUGS (4)
  1. PRADAXA [Suspect]
     Active Substance: DABIGATRAN ETEXILATE MESYLATE
     Dates: start: 20131105, end: 20141110
  2. FLOMAX [Concomitant]
     Active Substance: TAMSULOSIN HYDROCHLORIDE
  3. ULORIC [Suspect]
     Active Substance: FEBUXOSTAT
     Dates: start: 20140620, end: 20141129
  4. LOSARTAN. [Concomitant]
     Active Substance: LOSARTAN

REACTIONS (6)
  - Urinary tract infection [None]
  - Syncope [None]
  - Post procedural infection [None]
  - Bile duct obstruction [None]
  - Ankle fracture [None]
  - Bile duct stone [None]

NARRATIVE: CASE EVENT DATE: 20140702
